FAERS Safety Report 7779559-2 (Version None)
Quarter: 2011Q3

REPORT INFORMATION
  Report Type: 
  Country: None (occurrence: None)
  Receive Date: 20110927
  Receipt Date: 20110914
  Transmission Date: 20111222
  Serious: Yes (Other)
  Sender: FDA-Public Use
  Company Number: GB-RANBAXY-2011R1-48344

PATIENT
  Age: 22 Year
  Sex: Male
  Weight: 75 kg

DRUGS (7)
  1. TOPIRAMATE [Concomitant]
     Indication: EPILEPSY
     Dosage: 150 MG, BID
     Route: 048
  2. LAMOTRIGINE [Concomitant]
     Indication: EPILEPSY
     Dosage: 250 MG, BID
     Route: 048
  3. SERTRALINE HYDROCHLORIDE [Concomitant]
     Indication: OBSESSIVE-COMPULSIVE DISORDER
  4. SULPIRIDE [Concomitant]
     Indication: PRODUCT USED FOR UNKNOWN INDICATION
     Dosage: UNK
     Route: 048
  5. SERTRALINE HYDROCHLORIDE [Concomitant]
     Indication: AFFECTIVE DISORDER
     Dosage: 150 MG, QD
     Route: 048
  6. AMOXICILLIN [Suspect]
     Indication: ORAL INFECTION
     Dosage: 250 MG, UNK
     Route: 048
     Dates: start: 20110825, end: 20110830
  7. KALMS [Concomitant]
     Indication: PRODUCT USED FOR UNKNOWN INDICATION
     Dosage: 3 DF, QD
     Route: 048

REACTIONS (2)
  - RASH MACULO-PAPULAR [None]
  - MOUTH ULCERATION [None]
